FAERS Safety Report 7586088-8 (Version None)
Quarter: 2011Q3

REPORT INFORMATION
  Report Type: 
  Country: None (occurrence: None)
  Receive Date: 20110701
  Receipt Date: 20110629
  Transmission Date: 20111222
  Serious: Yes (Hospitalization)
  Sender: FDA-Public Use
  Company Number: US-ABBOTT-11P-163-0835132-00

PATIENT
  Sex: Female

DRUGS (2)
  1. FORTEO [Concomitant]
     Indication: PRODUCT USED FOR UNKNOWN INDICATION
     Route: 058
  2. HUMIRA [Suspect]
     Indication: PRODUCT USED FOR UNKNOWN INDICATION
     Route: 058
     Dates: start: 20101201

REACTIONS (3)
  - ULCER HAEMORRHAGE [None]
  - CONDITION AGGRAVATED [None]
  - HISTOPLASMOSIS [None]
